FAERS Safety Report 18751483 (Version 1)
Quarter: 2021Q1

REPORT INFORMATION
  Report Type: Spontaneous
  Country: US (occurrence: US)
  Receive Date: 20210118
  Receipt Date: 20210118
  Transmission Date: 20210419
  Serious: Yes (Hospitalization, Other)
  Sender: FDA-Public Use
  Company Number: US-ORION CORPORATION ORION PHARMA-21_00012639

PATIENT
  Age: 77 Year
  Sex: Male

DRUGS (1)
  1. METHOTREXATE. [Suspect]
     Active Substance: METHOTREXATE
     Indication: RHEUMATOID ARTHRITIS
     Route: 048

REACTIONS (5)
  - Hepatotoxicity [Recovered/Resolved]
  - Contraindicated product administered [Unknown]
  - Toxicity to various agents [Recovered/Resolved]
  - Stomatitis [Recovered/Resolved]
  - Pancytopenia [Recovered/Resolved]
